FAERS Safety Report 5958897-X (Version None)
Quarter: 2008Q4

REPORT INFORMATION
  Report Type: 
  Country: None (occurrence: None)
  Receive Date: 20081118
  Receipt Date: 20081105
  Transmission Date: 20090506
  Serious: Yes (Other)
  Sender: FDA-Public Use
  Company Number: 2008EK000208

PATIENT
  Age: 42 Year
  Sex: Male

DRUGS (1)
  1. CARDENE [Suspect]
     Indication: VASOSPASM
     Dosage: 7.5 MG; X1; IART
     Route: 013

REACTIONS (1)
  - CONVULSION [None]
